FAERS Safety Report 17646855 (Version 1)
Quarter: 2020Q2

REPORT INFORMATION
  Report Type: Report from Study
  Country: CO (occurrence: CO)
  Receive Date: 20200408
  Receipt Date: 20200408
  Transmission Date: 20200713
  Serious: Yes (Death)
  Sender: FDA-Public Use
  Company Number: CO-SEATTLE GENETICS-2020SGN01215

PATIENT
  Age: 24 Year
  Sex: Female
  Weight: 39 kg

DRUGS (1)
  1. BRENTUXIMAB VEDOTIN-MPI [Suspect]
     Active Substance: BRENTUXIMAB VEDOTIN
     Indication: HODGKIN^S DISEASE
     Dosage: 79 MG, UNK
     Route: 042
     Dates: start: 20190301, end: 20200403

REACTIONS (2)
  - Decreased appetite [Recovered/Resolved]
  - Death [Fatal]

NARRATIVE: CASE EVENT DATE: 20200403
